FAERS Safety Report 9197318 (Version 1)
Quarter: 2013Q1

REPORT INFORMATION
  Report Type: Spontaneous
  Country: BR (occurrence: BR)
  Receive Date: 20130328
  Receipt Date: 20130328
  Transmission Date: 20140127
  Serious: Yes (Other)
  Sender: FDA-Public Use
  Company Number: BR-PFIZER INC-2013097927

PATIENT
  Age: 72 Year
  Sex: Male

DRUGS (3)
  1. FRONTAL [Suspect]
     Indication: DEPRESSION
     Dosage: 1 MG, ONCE A DAY (AT NIGHT)
     Route: 048
     Dates: start: 20130228, end: 20130324
  2. FRONTAL [Suspect]
     Indication: ANXIETY
  3. SIFROL [Concomitant]
     Indication: RESTLESS LEGS SYNDROME
     Dosage: 0.25 MG, UNK
     Dates: start: 201212

REACTIONS (4)
  - Suicidal ideation [Unknown]
  - Drug ineffective [Unknown]
  - Confusional state [Unknown]
  - Peripheral coldness [Unknown]
